FAERS Safety Report 21165449 (Version 1)
Quarter: 2022Q3

REPORT INFORMATION
  Report Type: Spontaneous
  Country: US (occurrence: None)
  Receive Date: 20220802
  Receipt Date: 20220802
  Transmission Date: 20221027
  Serious: Yes (Life-Threatening, Disabling, Other)
  Sender: FDA-Public Use
  Company Number: None

PATIENT
  Age: 47 Year
  Sex: Female
  Weight: 62.1 kg

DRUGS (4)
  1. PAXLOVID [Suspect]
     Active Substance: NIRMATRELVIR\RITONAVIR
     Indication: COVID-19
     Dosage: OTHER QUANTITY : 3 TABLET(S);?FREQUENCY : TWICE A DAY;?
     Route: 048
     Dates: start: 20220726, end: 20220727
  2. IBUPROFEN [Concomitant]
     Active Substance: IBUPROFEN
  3. pseudophedrine hydrochloride [Concomitant]
  4. EB-S4 calcium supplement [Concomitant]

REACTIONS (5)
  - Pruritus [None]
  - Chest discomfort [None]
  - Urticaria [None]
  - Lip swelling [None]
  - Throat tightness [None]

NARRATIVE: CASE EVENT DATE: 20220726
